FAERS Safety Report 9518941 (Version 2)
Quarter: 2013Q4

REPORT INFORMATION
  Report Type: Spontaneous
  Country: US (occurrence: US)
  Receive Date: 20130912
  Receipt Date: 20131031
  Transmission Date: 20140711
  Serious: No
  Sender: FDA-Public Use
  Company Number: US-PFIZER INC-2013258514

PATIENT
  Age: 19 Year
  Sex: Male
  Weight: 104 kg

DRUGS (2)
  1. ADVIL [Suspect]
     Indication: NASOPHARYNGITIS
     Dosage: 200 MG, UNK
     Route: 048
  2. ADVIL [Suspect]
     Dosage: 400 MG (TWO TABLETS, 200MG EACH), UNK
     Route: 048
     Dates: start: 20130906

REACTIONS (6)
  - Off label use [Unknown]
  - Pyrexia [Recovering/Resolving]
  - Tremor [Recovering/Resolving]
  - Dysarthria [Recovering/Resolving]
  - Pain [Recovering/Resolving]
  - Product quality issue [Unknown]
